FAERS Safety Report 4705332-5 (Version None)
Quarter: 2005Q2

REPORT INFORMATION
  Report Type: 
  Country: None (occurrence: None)
  Receive Date: 20050629
  Receipt Date: 20050614
  Transmission Date: 20051028
  Serious: Yes (Death)
  Sender: FDA-Public Use
  Company Number: 2005-DE-02255GD

PATIENT
  Age: 22 Year
  Sex: Female

DRUGS (9)
  1. MORPHINE SULFATE [Suspect]
     Indication: PAIN IN EXTREMITY
  2. HYDROCODONE BITARTRATE [Suspect]
     Indication: PAIN IN EXTREMITY
  3. MEPERIDINE HCL [Suspect]
     Indication: BACK PAIN
     Dosage: IV
     Route: 042
  4. FENTANYL [Suspect]
     Indication: BACK PAIN
     Dosage: IV
     Route: 042
  5. KETOROLAC TROMETHAMINE [Suspect]
     Indication: BACK PAIN
     Dosage: IV
     Route: 042
  6. FOLIC ACID [Concomitant]
  7. PARACETAMOL (PARACETAMOL) (PARACETAMOL) [Concomitant]
  8. DIPHENHYDRAMINE HCL [Concomitant]
  9. FUROSEMIDE [Concomitant]

REACTIONS (31)
  - ACUTE CHEST SYNDROME [None]
  - ACUTE RESPIRATORY DISTRESS SYNDROME [None]
  - ARTHRALGIA [None]
  - ATELECTASIS [None]
  - BACK PAIN [None]
  - BLOOD PRESSURE INCREASED [None]
  - BONE MARROW DISORDER [None]
  - BRAIN OEDEMA [None]
  - BRAIN SCAN ABNORMAL [None]
  - CARDIAC ARREST [None]
  - CENTRAL VENOUS PRESSURE INCREASED [None]
  - CHEST X-RAY ABNORMAL [None]
  - DILATATION VENTRICULAR [None]
  - EJECTION FRACTION DECREASED [None]
  - FALL [None]
  - FLUID RETENTION [None]
  - HEADACHE [None]
  - HEART RATE INCREASED [None]
  - LUNG DISORDER [None]
  - MEAN ARTERIAL PRESSURE INCREASED [None]
  - NAUSEA [None]
  - OXYGEN SATURATION DECREASED [None]
  - PAIN IN EXTREMITY [None]
  - PULMONARY ARTERIAL PRESSURE INCREASED [None]
  - PULMONARY EMBOLISM [None]
  - RALES [None]
  - RESPIRATORY RATE INCREASED [None]
  - RIGHT VENTRICULAR SYSTOLIC PRESSURE INCREASED [None]
  - UROBILIN URINE [None]
  - VASCULAR OCCLUSION [None]
  - VOMITING [None]
